FAERS Safety Report 8613866-6 (Version None)
Quarter: 2012Q3

REPORT INFORMATION
  Report Type: 
  Country: None (occurrence: None)
  Receive Date: 20120823
  Receipt Date: 20120809
  Transmission Date: 20120928
  Serious: Yes (Other)
  Sender: FDA-Public Use
  Company Number: JP-009507513-1208JPN004877

PATIENT

DRUGS (6)
  1. TALION (BEPOTASTINE BESYLATE) [Concomitant]
     Indication: PROPHYLAXIS
     Dosage: 20 MG, QD
     Route: 048
     Dates: start: 20120612
  2. TELAVIC [Suspect]
     Indication: HEPATITIS C
     Dosage: 2250 MG, QD
     Route: 048
     Dates: start: 20120612
  3. PEG-INTRON [Suspect]
     Indication: HEPATITIS C
     Dosage: 1.5 MICROGRAM PER KILOGRAM, QW
     Route: 058
     Dates: start: 20120612, end: 20120625
  4. PEG-INTRON [Suspect]
     Dosage: 0.75 UNK, UNK
     Route: 058
     Dates: start: 20120626, end: 20120702
  5. PEG-INTRON [Suspect]
     Dosage: 1.5 MICROGRAM PER KILOGRAM, QW
     Dates: start: 20120703
  6. REBETOL [Suspect]
     Indication: HEPATITIS C
     Dosage: 800 MG, QD
     Route: 048
     Dates: start: 20120612

REACTIONS (1)
  - LOSS OF CONSCIOUSNESS [None]
